FAERS Safety Report 7778939-9 (Version None)
Quarter: 2011Q3

REPORT INFORMATION
  Report Type: 
  Country: None (occurrence: None)
  Receive Date: 20110926
  Receipt Date: 20110217
  Transmission Date: 20111222
  Serious: No
  Sender: FDA-Public Use
  Company Number: US-BAYER-2011-016973

PATIENT

DRUGS (1)
  1. ULTRAVIST 150 [Suspect]
     Dosage: 125 ML, ONCE
     Dates: start: 20101215, end: 20101215

REACTIONS (3)
  - ERYTHEMA [None]
  - FLUSHING [None]
  - MUSCLE TIGHTNESS [None]
